FAERS Safety Report 5065925-5 (Version None)
Quarter: 2006Q3

REPORT INFORMATION
  Report Type: 
  Country: None (occurrence: None)
  Receive Date: 20060731
  Receipt Date: 20060717
  Transmission Date: 20061208
  Serious: Yes (Life-Threatening, Hospitalization)
  Sender: FDA-Public Use
  Company Number: PHEH2006US09401

PATIENT
  Age: 9 Year
  Sex: Male
  Weight: 27.392 kg

DRUGS (1)
  1. EXJADE [Suspect]
     Indication: BLOOD IRON INCREASED
     Dosage: UNK, UNK
     Route: 048
     Dates: start: 20060324

REACTIONS (4)
  - CITROBACTER INFECTION [None]
  - CITROBACTER SEPSIS [None]
  - HYPOTENSION [None]
  - PYREXIA [None]
